FAERS Safety Report 24642925 (Version 4)
Quarter: 2025Q1

REPORT INFORMATION
  Report Type: Report from Study
  Country: US (occurrence: US)
  Receive Date: 20241120
  Receipt Date: 20250324
  Transmission Date: 20250409
  Serious: Yes (Hospitalization, Other)
  Sender: TAKEDA
  Company Number: US-TAKEDA-2024TUS115291

PATIENT
  Age: 50 Year
  Sex: Male
  Weight: 60 kg

DRUGS (18)
  1. TEDUGLUTIDE [Suspect]
     Active Substance: TEDUGLUTIDE
     Indication: Short-bowel syndrome
     Dosage: 0.15 MILLILITER, QD
     Dates: start: 20241108
  2. TEDUGLUTIDE [Suspect]
     Active Substance: TEDUGLUTIDE
     Dosage: 1.5 MILLIGRAM, QD
  3. TEDUGLUTIDE [Suspect]
     Active Substance: TEDUGLUTIDE
     Dosage: 1.5 MILLIGRAM, QD
  4. TEDUGLUTIDE [Suspect]
     Active Substance: TEDUGLUTIDE
     Dosage: 1.5 MILLIGRAM, QD
  5. ELIQUIS [Suspect]
     Active Substance: APIXABAN
     Indication: Deep vein thrombosis
  6. TRAZODONE HCL [Concomitant]
     Active Substance: TRAZODONE HYDROCHLORIDE
  7. THIAMINE HYDROCHLORIDE [Concomitant]
     Active Substance: THIAMINE HYDROCHLORIDE
  8. TACROLIMUS [Concomitant]
     Active Substance: TACROLIMUS
  9. SODIUM CHLORIDE [Concomitant]
     Active Substance: SODIUM CHLORIDE
  10. LYRICA [Concomitant]
     Active Substance: PREGABALIN
  11. PREDNISOLONE [Concomitant]
     Active Substance: PREDNISOLONE
  12. ONDANSETRON HYDROCHLORIDE [Concomitant]
     Active Substance: ONDANSETRON HYDROCHLORIDE
  13. MIRTAZAPINE [Concomitant]
     Active Substance: MIRTAZAPINE
  14. KEPPRA [Concomitant]
     Active Substance: LEVETIRACETAM
  15. ACETAMINOPHEN\HYDROCODONE [Concomitant]
     Active Substance: ACETAMINOPHEN\HYDROCODONE
  16. VITAMIN D3 [Concomitant]
     Active Substance: CHOLECALCIFEROL
  17. ATROPINE\DIPHENOXYLATE [Concomitant]
     Active Substance: ATROPINE\DIPHENOXYLATE
  18. BACLOFEN [Concomitant]
     Active Substance: BACLOFEN

REACTIONS (14)
  - Loss of consciousness [Unknown]
  - Haematochezia [Unknown]
  - Deep vein thrombosis [Unknown]
  - Thrombosis [Unknown]
  - Amnesia [Unknown]
  - Weight decreased [Unknown]
  - Epistaxis [Unknown]
  - Frustration tolerance decreased [Unknown]
  - Product dose omission issue [Unknown]
  - Product use issue [Unknown]
  - Allergic sinusitis [Unknown]
  - Weight increased [Unknown]
  - Appetite disorder [Recovering/Resolving]
  - Decreased appetite [Unknown]

NARRATIVE: CASE EVENT DATE: 20241111
